FAERS Safety Report 10021083 (Version 2)
Quarter: 2014Q1

REPORT INFORMATION
  Report Type: Spontaneous
  Country: US (occurrence: US)
  Receive Date: 20140319
  Receipt Date: 20140320
  Transmission Date: 20141002
  Serious: No
  Sender: FDA-Public Use
  Company Number: US-PFIZER INC-2014077996

PATIENT
  Age: 57 Year
  Sex: Female
  Weight: 59.86 kg

DRUGS (4)
  1. EFFEXOR XR [Suspect]
     Indication: DEPRESSION
     Dosage: 150 MG, 2X/DAY
     Route: 048
  2. EFFEXOR XR [Suspect]
     Dosage: UNK
     Route: 048
  3. ADVAIR [Concomitant]
     Indication: ASTHMA
     Dosage: UNK, 2X/DAY
  4. ALBUTEROL [Concomitant]
     Indication: CHRONIC OBSTRUCTIVE PULMONARY DISEASE
     Dosage: UNK, AS NEEDED

REACTIONS (4)
  - Product quality issue [Unknown]
  - Dizziness [Unknown]
  - Memory impairment [Unknown]
  - Heart rate increased [Unknown]
